FAERS Safety Report 8978403 (Version 1)
Quarter: 2012Q4

REPORT INFORMATION
  Report Type: Report from Study
  Country: US (occurrence: US)
  Receive Date: 20121221
  Receipt Date: 20121221
  Transmission Date: 20130627
  Serious: Yes (Death, Hospitalization)
  Sender: FDA-Public Use
  Company Number: US-BRISTOL-MYERS SQUIBB COMPANY-17202276

PATIENT
  Age: 59 Year
  Sex: Male
  Weight: 60.5 kg

DRUGS (10)
  1. CARBOPLATIN [Suspect]
     Indication: NON-SMALL CELL LUNG CANCER
     Dosage: 1 df=6 AUC
     Route: 042
     Dates: start: 20121102, end: 20121102
  2. GEMCITABINE HCL [Suspect]
     Indication: NON-SMALL CELL LUNG CANCER
     Route: 042
     Dates: start: 20121102, end: 20121102
  3. RAMUCIRUMAB [Suspect]
     Indication: NON-SMALL CELL LUNG CANCER
     Dosage: liquid
     Route: 042
     Dates: start: 20121102, end: 20121102
  4. FOLIC ACID [Concomitant]
  5. DEXAMETHASONE [Concomitant]
     Dates: start: 20121102
  6. DILTIAZEM HCL [Concomitant]
  7. METOPROLOL [Concomitant]
  8. DIGOXIN [Concomitant]
  9. VITAMIN B12 [Concomitant]
  10. FLOMAX [Concomitant]

REACTIONS (3)
  - Malignant neoplasm progression [Fatal]
  - Dehydration [Recovered/Resolved]
  - Mental status changes [Recovered/Resolved]
